FAERS Safety Report 7652252-2 (Version None)
Quarter: 2011Q3

REPORT INFORMATION
  Report Type: 
  Country: None (occurrence: None)
  Receive Date: 20110803
  Receipt Date: 20100628
  Transmission Date: 20111222
  Serious: Yes (Death, Hospitalization)
  Sender: FDA-Public Use
  Company Number: GB-RANBAXY-2010RR-35515

PATIENT
  Age: 70 Year
  Sex: Female

DRUGS (26)
  1. CEFTRIAXONE [Suspect]
     Indication: PNEUMONIA
  2. FUROSEMIDE [Suspect]
     Indication: HYPERTENSION
  3. LEVOFLOXACIN [Suspect]
     Indication: BACTERAEMIA
  4. DEXTROSE [Concomitant]
     Indication: HYPOGLYCAEMIA
     Route: 042
  5. AMITRIPTYLINE HCL [Suspect]
     Indication: DEPRESSION
  6. CIPROFLAXACIN [Suspect]
     Indication: BACTERAEMIA
  7. OMEPRAZOLE [Suspect]
  8. LATANOPROST [Concomitant]
  9. DORZOLAMIDE [Concomitant]
  10. VANCOMYCIN [Suspect]
     Indication: BACTERAEMIA
  11. METFORMIN HCL [Suspect]
     Indication: TYPE 2 DIABETES MELLITUS
     Route: 048
  12. VERAPAMIL [Suspect]
     Indication: HYPERTENSION
  13. AMIKACIN [Suspect]
     Indication: BACTERAEMIA
  14. HYDROCORTISONE [Suspect]
     Indication: TOXIC EPIDERMAL NECROLYSIS
     Dosage: 500 MG, UNK
     Route: 042
  15. THEOPHYLLINE [Suspect]
     Indication: BRONCHITIS CHRONIC
  16. MAGNESIUM SULFATE [Concomitant]
     Indication: HYPOMAGNESAEMIA
  17. CITALOPRAM [Suspect]
     Indication: DEPRESSION
  18. IMMUNE GLOBULIN NOS [Suspect]
     Dosage: 40 G, UNK
     Route: 042
  19. PIPERACILLIN [Suspect]
     Indication: BACTERAEMIA
  20. SIMVASTATIN [Suspect]
     Indication: HYPERLIPIDAEMIA
  21. AMPICILLIN SODIUM [Suspect]
     Indication: BACTERAEMIA
  22. ASPIRIN [Suspect]
     Indication: HYPERTENSION
  23. ASPIRIN [Suspect]
     Indication: MYOCARDIAL ISCHAEMIA
  24. ENALAPRIL MALEATE [Suspect]
     Indication: HYPERTENSION
  25. GLYBURIDE [Suspect]
     Indication: TYPE 2 DIABETES MELLITUS
     Route: 048
  26. TAZOBACTAM [Suspect]

REACTIONS (5)
  - ACUTE RESPIRATORY DISTRESS SYNDROME [None]
  - BACTERIAL INFECTION [None]
  - HYPOGLYCAEMIA [None]
  - HAEMORRHAGE INTRACRANIAL [None]
  - TOXIC EPIDERMAL NECROLYSIS [None]
